FAERS Safety Report 20247001 (Version 1)
Quarter: 2021Q4

REPORT INFORMATION
  Report Type: Spontaneous
  Country: US (occurrence: US)
  Receive Date: 20211229
  Receipt Date: 20211229
  Transmission Date: 20220303
  Serious: Yes (Death, Other)
  Sender: FDA-Public Use
  Company Number: US-BIOVITRUM-2021US12786

PATIENT
  Sex: Female

DRUGS (2)
  1. ANAKINRA [Suspect]
     Active Substance: ANAKINRA
     Indication: Multisystem inflammatory syndrome
  2. ANAKINRA [Suspect]
     Active Substance: ANAKINRA
     Indication: COVID-19

REACTIONS (2)
  - Bacterial sepsis [Fatal]
  - Off label use [Unknown]
